FAERS Safety Report 10234538 (Version 2)
Quarter: 2014Q3

REPORT INFORMATION
  Report Type: Spontaneous
  Country: US (occurrence: US)
  Receive Date: 20140613
  Receipt Date: 20140804
  Transmission Date: 20150326
  Serious: No
  Sender: FDA-Public Use
  Company Number: US-ASTRAZENECA-2014SE39366

PATIENT
  Age: 69 Year
  Sex: Female
  Weight: 65.3 kg

DRUGS (6)
  1. IMURAN [Suspect]
     Active Substance: AZATHIOPRINE
     Route: 065
  2. HUMIRA [Suspect]
     Active Substance: ADALIMUMAB
     Indication: CROHN^S DISEASE
     Route: 065
     Dates: start: 201209
  3. SYMBICORT [Suspect]
     Active Substance: BUDESONIDE\FORMOTEROL FUMARATE DIHYDRATE
     Route: 055
  4. HUMIRA [Suspect]
     Active Substance: ADALIMUMAB
     Indication: CROHN^S DISEASE
     Route: 065
     Dates: start: 2011, end: 201209
  5. SINGULAIR [Concomitant]
     Active Substance: MONTELUKAST SODIUM
  6. ENTOCORT [Suspect]
     Active Substance: BUDESONIDE
     Route: 048

REACTIONS (1)
  - Skin atrophy [Unknown]

NARRATIVE: CASE EVENT DATE: 2013
